FAERS Safety Report 21851819 (Version 6)
Quarter: 2023Q1

REPORT INFORMATION
  Report Type: Other
  Country: GB (occurrence: None)
  Receive Date: 20230112
  Receipt Date: 20230130
  Transmission Date: 20230418
  Serious: Yes (Other)
  Sender: FDA-Public Use
  Company Number: GB-ROCHE-3256583

PATIENT
  Sex: Male

DRUGS (19)
  1. IBRUTINIB [Suspect]
     Active Substance: IBRUTINIB
     Indication: Richter^s syndrome
     Route: 048
     Dates: start: 20200106, end: 20200110
  2. IBRUTINIB [Suspect]
     Active Substance: IBRUTINIB
     Indication: Richter^s syndrome
     Route: 048
     Dates: start: 20200106, end: 20201110
  3. BENDAMUSTINE [Suspect]
     Active Substance: BENDAMUSTINE
     Indication: Richter^s syndrome
     Dosage: FREQUENCY: ONCE DAILY
     Route: 042
     Dates: start: 20210108, end: 20210109
  4. RITUXIMAB [Suspect]
     Active Substance: RITUXIMAB
     Indication: Richter^s syndrome
     Route: 065
     Dates: start: 20200106, end: 20200110
  5. RITUXIMAB [Suspect]
     Active Substance: RITUXIMAB
     Indication: Richter^s syndrome
     Route: 065
     Dates: start: 20150109, end: 20160201
  6. RITUXIMAB [Suspect]
     Active Substance: RITUXIMAB
     Indication: Richter^s syndrome
     Route: 065
     Dates: start: 20190111, end: 20200106
  7. RITUXIMAB [Suspect]
     Active Substance: RITUXIMAB
     Indication: Richter^s syndrome
     Route: 065
     Dates: start: 20210108, end: 20210109
  8. VINCRISTINE [Suspect]
     Active Substance: VINCRISTINE
     Indication: Richter^s syndrome
     Route: 065
     Dates: start: 20200106, end: 20200110
  9. OXALIPLATIN [Suspect]
     Active Substance: OXALIPLATIN
     Indication: Richter^s syndrome
     Route: 065
     Dates: start: 20200111, end: 20210101
  10. FLUDARABINE [Suspect]
     Active Substance: FLUDARABINE PHOSPHATE
     Indication: Richter^s syndrome
     Route: 065
     Dates: start: 20150109, end: 20160102
  11. DOXORUBICIN HYDROCHLORIDE [Suspect]
     Active Substance: DOXORUBICIN HYDROCHLORIDE
     Indication: Richter^s syndrome
     Route: 065
     Dates: start: 20200106, end: 20200110
  12. CARBOPLATIN [Suspect]
     Active Substance: CARBOPLATIN
     Indication: Richter^s syndrome
     Route: 065
     Dates: start: 20200111, end: 20210101
  13. CISPLATIN [Suspect]
     Active Substance: CISPLATIN
     Indication: Richter^s syndrome
     Route: 065
     Dates: start: 20200111, end: 20210101
  14. PREDNISONE ACETATE [Suspect]
     Active Substance: PREDNISONE ACETATE
     Indication: Richter^s syndrome
     Route: 065
     Dates: start: 20200106, end: 20200110
  15. GEMCITABINE [Suspect]
     Active Substance: GEMCITABINE
     Indication: Richter^s syndrome
     Route: 065
     Dates: start: 20200111, end: 20210101
  16. POLATUZUMAB VEDOTIN [Suspect]
     Active Substance: POLATUZUMAB VEDOTIN
     Indication: Richter^s syndrome
     Route: 065
     Dates: start: 20210108, end: 20210109
  17. VENETOCLAX [Suspect]
     Active Substance: VENETOCLAX
     Indication: Richter^s syndrome
     Route: 048
     Dates: start: 20190111, end: 20200106
  18. CYCLOPHOSPHAMIDE [Suspect]
     Active Substance: CYCLOPHOSPHAMIDE
     Indication: Richter^s syndrome
     Route: 065
     Dates: start: 20150109, end: 20160102
  19. CYCLOPHOSPHAMIDE [Suspect]
     Active Substance: CYCLOPHOSPHAMIDE
     Indication: Richter^s syndrome
     Route: 065
     Dates: start: 20200106, end: 20200110

REACTIONS (2)
  - Malignant neoplasm progression [Unknown]
  - Off label use [Unknown]

NARRATIVE: CASE EVENT DATE: 20210108
